FAERS Safety Report 8312102-8 (Version None)
Quarter: 2012Q2

REPORT INFORMATION
  Report Type: 
  Country: None (occurrence: None)
  Receive Date: 20120425
  Receipt Date: 20120416
  Transmission Date: 20120825
  Serious: Yes (Hospitalization)
  Sender: FDA-Public Use
  Company Number: FR-ASTRAZENECA-2012SE24175

PATIENT
  Age: 81 Year
  Sex: Female

DRUGS (4)
  1. NEXIUM [Suspect]
     Route: 048
  2. ESCITALOPRAM [Suspect]
     Indication: DEPRESSION
     Route: 048
     Dates: start: 20120123, end: 20120130
  3. IRBESARTAN + HYDROCHLOROTHIAZIDE [Suspect]
     Indication: HYPERTENSION
     Dosage: 150 MG / 12.5 MG, 1 DOSAGE FORM DAILY
     Route: 048
     Dates: start: 20110801, end: 20120131
  4. NEXIUM [Suspect]
     Indication: GASTRITIS
     Route: 048
     Dates: start: 20120128, end: 20120131

REACTIONS (2)
  - HYPONATRAEMIA [None]
  - HYPONATRAEMIC ENCEPHALOPATHY [None]
